FAERS Safety Report 6876264-1 (Version None)
Quarter: 2010Q3

REPORT INFORMATION
  Report Type: 
  Country: None (occurrence: None)
  Receive Date: 20100727
  Receipt Date: 20100720
  Transmission Date: 20110219
  Serious: Yes (Disabling)
  Sender: FDA-Public Use
  Company Number: B0620169A

PATIENT
  Sex: Male

DRUGS (12)
  1. REQUIP [Suspect]
     Indication: PARKINSON'S DISEASE
     Route: 048
     Dates: start: 20080904
  2. CARBIDOPA AND LEVODOPA [Concomitant]
     Indication: PARKINSON'S DISEASE
     Dosage: 50MG TWICE PER DAY
     Route: 048
     Dates: start: 20090603, end: 20090607
  3. SELEGILINE HCL [Concomitant]
     Indication: PARKINSON'S DISEASE
     Dosage: 2.5MG TWICE PER DAY
     Route: 048
     Dates: start: 20090603, end: 20090607
  4. ARICEPT [Concomitant]
     Indication: DEMENTIA OF THE ALZHEIMER'S TYPE, UNCOMPLICATED
     Route: 048
  5. CHINESE MEDICINE [Concomitant]
     Indication: DEMENTIA OF THE ALZHEIMER'S TYPE, UNCOMPLICATED
     Route: 048
  6. GASTER D [Concomitant]
     Indication: DEMENTIA OF THE ALZHEIMER'S TYPE, UNCOMPLICATED
     Route: 048
  7. POLYFUL [Concomitant]
     Indication: DEMENTIA OF THE ALZHEIMER'S TYPE, UNCOMPLICATED
     Route: 048
  8. SALUMOSIN [Concomitant]
     Indication: DEMENTIA OF THE ALZHEIMER'S TYPE, UNCOMPLICATED
     Route: 048
  9. LUVOX [Concomitant]
     Indication: DEMENTIA OF THE ALZHEIMER'S TYPE, UNCOMPLICATED
     Route: 048
  10. HALCION [Concomitant]
     Indication: DEMENTIA OF THE ALZHEIMER'S TYPE, UNCOMPLICATED
     Route: 048
  11. LAC B [Concomitant]
     Route: 048
  12. UNKNOWN DRUG [Concomitant]
     Route: 048

REACTIONS (3)
  - HALLUCINATION [None]
  - IMPULSIVE BEHAVIOUR [None]
  - STUBBORNNESS [None]
